FAERS Safety Report 5837628-8 (Version None)
Quarter: 2008Q3

REPORT INFORMATION
  Report Type: 
  Country: None (occurrence: None)
  Receive Date: 20080807
  Receipt Date: 20080728
  Transmission Date: 20090109
  Serious: Yes (Other)
  Sender: FDA-Public Use
  Company Number: PHHY2008JP14391

PATIENT
  Age: 92 Year
  Sex: Female

DRUGS (2)
  1. DICLOFENAC SODIUM [Suspect]
     Indication: PAIN
     Dosage: UNK
     Route: 054
     Dates: end: 20070727
  2. LOXOPROFEN SODIUM [Suspect]
     Indication: PAIN
     Dosage: UNK
     Route: 048
     Dates: end: 20070727

REACTIONS (6)
  - BONE PAIN [None]
  - HEPATIC ENZYME INCREASED [None]
  - JOINT ARTHROPLASTY [None]
  - LIVER DISORDER [None]
  - NERVE BLOCK [None]
  - RENAL IMPAIRMENT [None]
